FAERS Safety Report 10094054 (Version 2)
Quarter: 2014Q3

REPORT INFORMATION
  Report Type: Report from Study
  Country: JP (occurrence: JP)
  Receive Date: 20140422
  Receipt Date: 20140708
  Transmission Date: 20150326
  Serious: No
  Sender: FDA-Public Use
  Company Number: JP-PFIZER INC-2014109805

PATIENT
  Age: 28 Year
  Sex: Female
  Weight: 60 kg

DRUGS (25)
  1. LACTEC [Concomitant]
     Active Substance: CALCIUM CHLORIDE ANHYDROUS\POTASSIUM CHLORIDE\SODIUM CHLORIDE\SODIUM LACTATE
     Indication: ELECTROLYTE SUBSTITUTION THERAPY
     Dosage: 500-2000ML
     Dates: start: 20140216, end: 20140220
  2. SEFMAZON [Concomitant]
     Active Substance: CEFAZOLIN
     Indication: SKULL FRACTURED BASE
  3. FENTANYL. [Concomitant]
     Active Substance: FENTANYL
     Indication: BRAIN INJURY
     Dosage: CONCENTRATION: 0.5-0.75MG
     Dates: start: 20140216, end: 20140220
  4. FENTANYL. [Concomitant]
     Active Substance: FENTANYL
     Indication: SKULL FRACTURED BASE
  5. PROPOFOL. [Concomitant]
     Active Substance: PROPOFOL
     Indication: BRAIN INJURY
     Dosage: CONCENTRATION: 1000-1500MG
     Dates: start: 20140216, end: 20140221
  6. PROPOFOL. [Concomitant]
     Active Substance: PROPOFOL
     Indication: SKULL FRACTURED BASE
  7. FAMOTIDINE. [Concomitant]
     Active Substance: FAMOTIDINE
     Indication: PROPHYLAXIS AGAINST GASTROINTESTINAL ULCER
     Dosage: CONCENTRATION: 40MG
     Dates: start: 20140216, end: 20140219
  8. TRANSAMIN [Concomitant]
     Active Substance: TRANEXAMIC ACID
     Indication: SKULL FRACTURED BASE
  9. MANNITOL. [Concomitant]
     Active Substance: MANNITOL
     Indication: SKULL FRACTURED BASE
  10. TRANSAMIN [Concomitant]
     Active Substance: TRANEXAMIC ACID
     Indication: BRAIN INJURY
     Dosage: CONCENTRATION: 1000MG
     Dates: start: 20140216
  11. TETANUS TOXOID [Concomitant]
     Active Substance: CLOSTRIDIUM TETANI TOXOID ANTIGEN (FORMALDEHYDE INACTIVATED)
     Indication: SKULL FRACTURED BASE
  12. GLYCERIN F [Concomitant]
     Indication: BRAIN INJURY
     Dosage: CONCENTRATION: 600ML
     Dates: start: 20140216, end: 20140222
  13. FOSPHENYTOIN SODIUM. [Suspect]
     Active Substance: FOSPHENYTOIN SODIUM
     Dosage: 6.25MG/KG (75MG/MIN 1:1 RATIO)
     Dates: start: 20140218
  14. FOSPHENYTOIN SODIUM. [Suspect]
     Active Substance: FOSPHENYTOIN SODIUM
     Dosage: 6.25 MG/KG (75MG/MIN 1:1 RATIO)
     Dates: start: 20140219
  15. ESLAX [Concomitant]
     Active Substance: ROCURONIUM BROMIDE
     Indication: SKULL FRACTURED BASE
  16. TETANUS TOXOID [Concomitant]
     Active Substance: CLOSTRIDIUM TETANI TOXOID ANTIGEN (FORMALDEHYDE INACTIVATED)
     Indication: BRAIN INJURY
     Dosage: CONCENTRATION: 0.5ML
     Dates: start: 20140216
  17. GLYCERIN F [Concomitant]
     Indication: SKULL FRACTURED BASE
  18. RIVOTRIL [Concomitant]
     Active Substance: CLONAZEPAM
     Indication: EPILEPSY
     Dosage: 3MG, UNK
     Route: 048
     Dates: start: 20140218, end: 20140226
  19. DEPAKENE [Concomitant]
     Active Substance: VALPROIC ACID
     Indication: EPILEPSY
     Dosage: 600MG, UNK
     Route: 048
     Dates: start: 20140219
  20. SEFMAZON [Concomitant]
     Active Substance: CEFAZOLIN
     Indication: BRAIN INJURY
     Dosage: CONCENTRATION: 2G
     Dates: start: 20140216
  21. ESLAX [Concomitant]
     Active Substance: ROCURONIUM BROMIDE
     Indication: BRAIN INJURY
     Dosage: CONCENTRATION: 50MG
     Dates: start: 20140216, end: 20140219
  22. MANNITOL. [Concomitant]
     Active Substance: MANNITOL
     Indication: BRAIN INJURY
     Dosage: CONCENTRATION: 600ML
     Dates: start: 20140216, end: 20140219
  23. KEPPRA [Concomitant]
     Active Substance: LEVETIRACETAM
     Indication: EPILEPSY
     Dosage: 1000MG, UNK
     Route: 048
     Dates: start: 20140225
  24. FOSPHENYTOIN SODIUM. [Suspect]
     Active Substance: FOSPHENYTOIN SODIUM
     Indication: CONVULSION PROPHYLAXIS
     Dosage: 18.75MG/KG (37.5 MG/MIN, 1:1 RATIO)
     Dates: start: 20140216
  25. FOSPHENYTOIN SODIUM. [Suspect]
     Active Substance: FOSPHENYTOIN SODIUM
     Dosage: 6.25MG/KG (75 MG/MIN 1:1 RATIO)
     Dates: start: 20140217

REACTIONS (1)
  - Erythema [Recovered/Resolved]

NARRATIVE: CASE EVENT DATE: 20140218
